FAERS Safety Report 20770477 (Version 3)
Quarter: 2023Q1

REPORT INFORMATION
  Report Type: Spontaneous
  Country: DE (occurrence: DE)
  Receive Date: 20220429
  Receipt Date: 20230327
  Transmission Date: 20230417
  Serious: Yes (Hospitalization, Other)
  Sender: FDA-Public Use
  Company Number: DE-009507513-2203DEU009804

PATIENT
  Age: 77 Year
  Sex: Male
  Weight: 81 kg

DRUGS (22)
  1. LERCANIDIPINE [Suspect]
     Active Substance: LERCANIDIPINE
     Indication: Hypertension
     Dosage: 1 DOSAGE FORM, BID (TWO TABLETS IN THE EVENING  )
     Route: 048
     Dates: end: 20220319
  2. RAMIPRIL [Suspect]
     Active Substance: RAMIPRIL
     Indication: Hypertension
     Dosage: 10 MILLIGRAM, QD, 5 MILLIGRAM, ONCE IN THE MORNING AND ONCE IN THE EVENING
     Route: 065
     Dates: end: 20220319
  3. RAMIPRIL [Suspect]
     Active Substance: RAMIPRIL
     Dosage: 2 DOSAGE FORM, QD
     Route: 048
  4. METFORMIN\SITAGLIPTIN [Suspect]
     Active Substance: METFORMIN\SITAGLIPTIN
     Indication: Type 2 diabetes mellitus
     Dosage: 1 DOSAGE FORM, QD, ONCE A DAY MORNINGS
     Route: 048
  5. METFORMIN\SITAGLIPTIN [Suspect]
     Active Substance: METFORMIN\SITAGLIPTIN
     Dosage: 2 DOSAGE FORM, DAILY, 500 MG/1000 MG
     Route: 048
  6. Eryfer [Concomitant]
     Indication: Anaemia
     Dosage: 1 DOSAGE FORM, QD (100 UNIT UNSPECIFIED)
     Route: 065
  7. Eryfer [Concomitant]
     Dosage: 100 MILLIGRAM, QD, ONCE IN THE MORNING
     Route: 048
  8. TORSEMIDE [Concomitant]
     Active Substance: TORSEMIDE
     Indication: Hypertension
     Dosage: 20 MILLIGRAM(1-0.5-0-0) ONE TABLET IN THE MORNING AND HALF A TABLET IN THE EVENING
     Route: 048
  9. TORSEMIDE [Concomitant]
     Active Substance: TORSEMIDE
     Dosage: 1.5 DOSAGE FORM, QD
     Route: 048
  10. LEVOTHYROXINE [Concomitant]
     Active Substance: LEVOTHYROXINE
     Indication: Hypothyroidism
     Dosage: 75 MICROGRAM, QD, ONCE IN THE MORNING
     Route: 048
  11. LEVOTHYROXINE [Concomitant]
     Active Substance: LEVOTHYROXINE
     Dosage: 1 DOSAGE FORM, QD
     Route: 048
  12. DOXAZOSIN [Concomitant]
     Active Substance: DOXAZOSIN MESYLATE
     Indication: Hypertension
     Dosage: 8 MILLIGRAM, (1-0-0.5-0), ONE TABLET IN THE MORNING AND HALF
     Route: 065
  13. DOXAZOSIN [Concomitant]
     Active Substance: DOXAZOSIN MESYLATE
     Dosage: 1.5 DOSAGE FORM, QD
     Route: 048
  14. EDOXABAN TOSYLATE [Concomitant]
     Active Substance: EDOXABAN TOSYLATE
     Indication: Atrial fibrillation
     Dosage: 1 DOSAGE FORM, QD
     Route: 065
  15. EDOXABAN TOSYLATE [Concomitant]
     Active Substance: EDOXABAN TOSYLATE
     Dosage: 60 MILLIGRAM, QD, ONCE IN THE MORNING
     Route: 048
  16. MOXONIDINE [Concomitant]
     Active Substance: MOXONIDINE
     Indication: Hypertension
     Dosage: 2 DOSAGE FORM, QD
     Route: 065
  17. MOXONIDINE [Concomitant]
     Active Substance: MOXONIDINE
     Dosage: 0.6 MILLIGRAM, QD (0.3 MILLIGRAM,ONCE IN THE MORNING AND ONCE IN THE EVENING)
     Route: 048
  18. METOPROLOL [Concomitant]
     Active Substance: METOPROLOL
     Indication: Hypertension
     Dosage: 190 MILLIGRAM (190 MG RETARD 0.5 - 0 - 0.5)
     Route: 065
  19. METOPROLOL [Concomitant]
     Active Substance: METOPROLOL
     Indication: Cardiac disorder
     Dosage: 1 DOSAGE FORM, QD, HALF A TABLET IN THE MORNING AND HALF A TABLET
     Route: 048
  20. METOPROLOL [Concomitant]
     Active Substance: METOPROLOL
     Dosage: 1 DOSAGE FORM, QD
     Route: 048
  21. EDOXABAN [Concomitant]
     Active Substance: EDOXABAN
     Indication: Atrial fibrillation
     Dosage: 1 DOSAGE FORM, QD
     Route: 048
  22. IRON [Concomitant]
     Active Substance: IRON
     Indication: Anaemia
     Dosage: 1 DOSAGE FORM, QD
     Route: 048

REACTIONS (2)
  - Incorrect dose administered [Unknown]
  - Haemolytic anaemia [Not Recovered/Not Resolved]

NARRATIVE: CASE EVENT DATE: 20220318
